FAERS Safety Report 8677627 (Version 3)
Quarter: 2014Q2

REPORT INFORMATION
  Report Type: Spontaneous
  Country: FR (occurrence: FR)
  Receive Date: 20120723
  Receipt Date: 20140527
  Transmission Date: 20141212
  Serious: Yes (Hospitalization)
  Sender: FDA-Public Use
  Company Number: FR-009507513-1207FRA000170

PATIENT
  Age: 53 Year
  Sex: Male
  Weight: 94 kg

DRUGS (9)
  1. VICTRELIS [Suspect]
     Indication: HEPATITIS C
     Dosage: 800 MG, TID
     Dates: start: 20110803, end: 20120607
  2. VIRAFERONPEG [Suspect]
     Indication: HEPATITIS C
     Dosage: 180 MICROGRAM, QW
     Dates: start: 20110706, end: 20120607
  3. REBETOL [Suspect]
     Indication: HEPATITIS C
     Dosage: 200 MG, TID
     Dates: start: 20110706, end: 20120607
  4. KETODERM [Concomitant]
     Indication: SKIN DISORDER
     Dosage: UNK
  5. PARIET [Concomitant]
     Indication: GASTROOESOPHAGEAL REFLUX DISEASE
     Dosage: 20 MG, QD
     Dates: start: 201101
  6. SERESTA [Concomitant]
     Indication: ANXIETY
     Dosage: 10 MG, QD
     Dates: start: 2011
  7. ATARAX (ALPRAZOLAM) [Concomitant]
     Indication: ANXIETY
     Dosage: 50 MG, QD
     Dates: start: 2011
  8. SEROPLEX [Concomitant]
     Indication: ANXIETY
     Dosage: 5 MG, QD
     Dates: start: 2011
  9. SEROPLEX [Concomitant]
     Indication: DEPRESSION

REACTIONS (1)
  - Pleural disorder [Recovered/Resolved]
